FAERS Safety Report 11391520 (Version 1)
Quarter: 2015Q3

REPORT INFORMATION
  Report Type: Spontaneous
  Country: US (occurrence: None)
  Receive Date: 20150814
  Receipt Date: 20150814
  Transmission Date: 20151125
  Serious: No
  Sender: FDA-Public Use
  Company Number: None

PATIENT
  Age: 35 Year
  Sex: Female
  Weight: 65.77 kg

DRUGS (1)
  1. DIAL CLEAR AND REFRESH ANTIBACTERIAL HAND SOAP CLEAR [Suspect]
     Active Substance: TRICLOSAN
     Indication: INFECTION PROPHYLAXIS
     Dates: start: 20150730, end: 20150806

REACTIONS (3)
  - Product odour abnormal [None]
  - Dry skin [None]
  - Product taste abnormal [None]

NARRATIVE: CASE EVENT DATE: 20150730
